FAERS Safety Report 21735979 (Version 8)
Quarter: 2023Q1

REPORT INFORMATION
  Report Type: Spontaneous
  Country: US (occurrence: US)
  Receive Date: 20221215
  Receipt Date: 20230223
  Transmission Date: 20230418
  Serious: No
  Sender: FDA-Public Use
  Company Number: US-PFIZER INC-PV202200118899

PATIENT
  Age: 52 Year
  Sex: Female

DRUGS (1)
  1. PREMARIN [Suspect]
     Active Substance: ESTROGENS, CONJUGATED
     Dosage: UNK

REACTIONS (6)
  - COVID-19 [Unknown]
  - Fall [Unknown]
  - Feeling abnormal [Unknown]
  - Head injury [Unknown]
  - Limb injury [Unknown]
  - Malabsorption [Unknown]

NARRATIVE: CASE EVENT DATE: 20220101
